FAERS Safety Report 9353611 (Version 1)
Quarter: 2013Q2

REPORT INFORMATION
  Report Type: Spontaneous
  Country: FR (occurrence: FR)
  Receive Date: 20130618
  Receipt Date: 20130618
  Transmission Date: 20140414
  Serious: Yes (Hospitalization)
  Sender: FDA-Public Use
  Company Number: FR-BAYER-2013-071023

PATIENT
  Age: 61 Year
  Sex: Female

DRUGS (13)
  1. CIFLOX [Suspect]
     Indication: BACTERIAL SEPSIS
     Dosage: 500 MG, BID
     Route: 048
     Dates: start: 20130418
  2. TAZOCILLINE [Suspect]
     Indication: BACTERIAL SEPSIS
     Dosage: 1 DF, TID,4 G/500 MG
     Route: 042
     Dates: start: 20130416
  3. LEXOMIL [Concomitant]
     Indication: ANXIETY
     Dosage: 3 MG, QD
     Route: 048
     Dates: start: 20130415
  4. DUROGESIC [Concomitant]
     Indication: PAIN
     Dosage: 25 ?G, Q1HR
     Route: 062
     Dates: start: 20130415
  5. INEXIUM [Concomitant]
     Dosage: DAILY DOSE 40 MG
     Dates: start: 20130415
  6. VENLAFAXINE [Concomitant]
     Indication: DEPRESSION
     Dosage: 37.5 MG, TID
     Route: 048
     Dates: start: 20130422
  7. VOGALENE [Concomitant]
     Dosage: 7.5 MG, TID
     Route: 048
     Dates: start: 20130417
  8. DOLIPRANE [Concomitant]
     Dosage: 1 G, QID
     Route: 048
     Dates: start: 20130417
  9. SPASFON [Concomitant]
     Dosage: 80 MG, TID
     Route: 048
     Dates: start: 20130417
  10. FUNGIZONE [Concomitant]
     Dosage: 1 DF, TID
     Dates: start: 20130417
  11. ACTISKENAN [Concomitant]
     Dosage: 10 MG, UNK
     Route: 048
     Dates: start: 20130417
  12. INNOHEP [Concomitant]
     Dosage: DAILY DOSE 10000 U
     Route: 058
     Dates: start: 20130418
  13. ELUDRIL [TETRACAINE HYDROCHLORIDE] [Concomitant]

REACTIONS (3)
  - Agranulocytosis [Not Recovered/Not Resolved]
  - Bacterial sepsis [Recovered/Resolved]
  - Rash [Unknown]
